FAERS Safety Report 4364271-2 (Version None)
Quarter: 2004Q2

REPORT INFORMATION
  Report Type: 
  Country: None (occurrence: None)
  Receive Date: 20040525
  Receipt Date: 20031209
  Transmission Date: 20050107
  Serious: Yes (Hospitalization, Disabling)
  Sender: FDA-Public Use
  Company Number: US-MERCK-0312USA00992

PATIENT
  Age: 52 Year
  Sex: Female
  Weight: 68 kg

DRUGS (13)
  1. ASPIRIN [Concomitant]
     Route: 065
     Dates: start: 20010101
  2. CORTISONE (CORTISONE ACETATE) [Concomitant]
     Route: 065
  3. VASOTEC [Concomitant]
     Indication: HYPERTENSION
     Route: 048
     Dates: start: 19990101
  4. PREMPRO [Concomitant]
     Indication: HORMONE LEVEL ABNORMAL
     Route: 065
     Dates: start: 20010207, end: 20011202
  5. ALLEGRA-D [Concomitant]
     Route: 065
  6. AMARYL [Concomitant]
     Indication: DIABETES MELLITUS
     Route: 065
     Dates: start: 19990101
  7. LEVOXYL [Concomitant]
     Indication: THYROID DISORDER
     Route: 065
     Dates: start: 20010101
  8. CLARITIN-D [Concomitant]
     Route: 065
  9. TOPROL-XL [Concomitant]
     Indication: HYPERTENSION
     Route: 065
     Dates: start: 19991213
  10. UNIVASC [Concomitant]
     Route: 065
     Dates: start: 20010913
  11. NITROSTAT [Concomitant]
     Route: 065
  12. VIOXX [Suspect]
     Indication: OSTEOARTHRITIS
     Route: 048
     Dates: start: 20010401, end: 20011202
  13. VIOXX [Suspect]
     Route: 048
     Dates: start: 20010101

REACTIONS (12)
  - ARTHRALGIA [None]
  - CEREBROVASCULAR ACCIDENT [None]
  - DEPRESSION [None]
  - HAEMORRHAGIC STROKE [None]
  - HEADACHE [None]
  - HYPERSENSITIVITY [None]
  - HYPOTHYROIDISM [None]
  - MUSCLE CRAMP [None]
  - NAUSEA [None]
  - PAIN IN EXTREMITY [None]
  - PROTEINURIA [None]
  - TROPONIN INCREASED [None]
